FAERS Safety Report 6985888-2 (Version None)
Quarter: 2010Q3

REPORT INFORMATION
  Report Type: 
  Country: None (occurrence: None)
  Receive Date: 20100827
  Receipt Date: 20100712
  Transmission Date: 20110219
  Serious: No
  Sender: FDA-Public Use
  Company Number: 015337

PATIENT

DRUGS (1)
  1. LACOSAMIDE [Suspect]

REACTIONS (1)
  - WEIGHT INCREASED [None]
